FAERS Safety Report 22810571 (Version 2)
Quarter: 2024Q1

REPORT INFORMATION
  Report Type: Other
  Country: EG (occurrence: None)
  Receive Date: 20230810
  Receipt Date: 20240122
  Transmission Date: 20240410
  Serious: Yes (Disabling)
  Sender: FDA-Public Use
  Company Number: EG-ROCHE-2808106

PATIENT
  Age: 32 Year
  Sex: Male
  Weight: 77 kg

DRUGS (1)
  1. OCREVUS [Suspect]
     Active Substance: OCRELIZUMAB
     Indication: Multiple sclerosis
     Route: 042
     Dates: start: 20201104, end: 20230226

REACTIONS (10)
  - Limb discomfort [Not Recovered/Not Resolved]
  - Movement disorder [Not Recovered/Not Resolved]
  - Drug ineffective [Unknown]
  - Asthenia [Unknown]
  - Fatigue [Unknown]
  - Nervousness [Not Recovered/Not Resolved]
  - Tension [Not Recovered/Not Resolved]
  - Depression [Not Recovered/Not Resolved]
  - Dizziness [Not Recovered/Not Resolved]
  - Dyspnoea [Not Recovered/Not Resolved]
